FAERS Safety Report 7693483-5 (Version None)
Quarter: 2011Q3

REPORT INFORMATION
  Report Type: 
  Country: None (occurrence: None)
  Receive Date: 20110819
  Receipt Date: 20110819
  Transmission Date: 20111222
  Serious: Yes (Disabling)
  Sender: FDA-Public Use
  Company Number: None

PATIENT
  Age: 72 Year
  Sex: Female
  Weight: 131 kg

DRUGS (1)
  1. AVELOX [Suspect]
     Indication: DYSPNOEA
     Dosage: 400MG
     Route: 041
     Dates: start: 20110707, end: 20110707

REACTIONS (1)
  - PRURITUS GENERALISED [None]
